FAERS Safety Report 10669775 (Version 1)
Quarter: 2014Q4

REPORT INFORMATION
  Report Type: Spontaneous
  Country: US (occurrence: US)
  Receive Date: 20141222
  Receipt Date: 20141222
  Transmission Date: 20150529
  Serious: Yes (Other)
  Sender: FDA-Public Use
  Company Number: US-SA-2014SA173467

PATIENT
  Age: 53 Year
  Sex: Male

DRUGS (2)
  1. SOLOSTAR [Concomitant]
     Active Substance: DEVICE
     Indication: TYPE 2 DIABETES MELLITUS
     Dosage: TREATMET START DATE: 7 YEARS AGO
  2. LANTUS SOLOSTAR [Suspect]
     Active Substance: INSULIN GLARGINE
     Indication: TYPE 2 DIABETES MELLITUS
     Dosage: 35 U AND THEN ADDED 20 UNITS MORE
     Route: 065

REACTIONS (4)
  - Paraesthesia [Unknown]
  - Cerebrovascular accident [Unknown]
  - Discomfort [Unknown]
  - Blood glucose increased [Recovering/Resolving]
